FAERS Safety Report 6576882-4 (Version None)
Quarter: 2010Q1

REPORT INFORMATION
  Report Type: 
  Country: None (occurrence: None)
  Receive Date: 20100210
  Receipt Date: 20100204
  Transmission Date: 20100710
  Serious: Yes (Other)
  Sender: FDA-Public Use
  Company Number: A0843741A

PATIENT
  Sex: Male
  Weight: 65 kg

DRUGS (1)
  1. FLIXOTIDE [Suspect]
     Dosage: 250MCG AT NIGHT
     Route: 055
     Dates: start: 20091223

REACTIONS (1)
  - ASTHMATIC CRISIS [None]
